FAERS Safety Report 5136560-5 (Version None)
Quarter: 2006Q4

REPORT INFORMATION
  Report Type: 
  Country: None (occurrence: None)
  Receive Date: 20061011
  Receipt Date: 20060905
  Transmission Date: 20070319
  Serious: Yes (Other)
  Sender: FDA-Public Use
  Company Number: 2006BH013424

PATIENT

DRUGS (1)
  1. TISSEEL VH KIT [Suspect]
     Indication: ABDOMINAL PANNICULECTOMY

REACTIONS (1)
  - POST PROCEDURAL HAEMATOMA [None]
